FAERS Safety Report 17350981 (Version 1)
Quarter: 2020Q1

REPORT INFORMATION
  Report Type: Spontaneous
  Country: DK (occurrence: DK)
  Receive Date: 20200130
  Receipt Date: 20200130
  Transmission Date: 20200409
  Serious: Yes (Other)
  Sender: FDA-Public Use
  Company Number: DK-TEVA-2020-DK-1177412

PATIENT
  Age: 78 Year
  Sex: Female
  Weight: 74 kg

DRUGS (10)
  1. HJERTEMAGNYL [Concomitant]
     Indication: THROMBOSIS PROPHYLAXIS
     Dosage: STRENGTH: 75 MG, DOSE: 75 MG
     Route: 048
     Dates: start: 20191221, end: 20200113
  2. PARACETAMOL [Concomitant]
     Active Substance: ACETAMINOPHEN
     Indication: PAIN
     Dosage: STRENGTH: 1000 MG, DOSAGE: 1000 MG AS NEEDED NO MORE THAN 4 TIMES DAILY
     Route: 054
     Dates: start: 20191226
  3. TRADOLAN [Concomitant]
     Active Substance: TRAMADOL
     Indication: PAIN
     Dosage: STRENGTH: 50 MG, DOSAGE: 1 DISCOUNTED AS NEEDED NO MORE THAN 3 TIMES DAILY
     Route: 048
     Dates: start: 20200108
  4. PANTOPRAZOLE ^TEVA^ [Concomitant]
     Active Substance: PANTOPRAZOLE SODIUM
     Indication: PROPHYLAXIS AGAINST GASTROINTESTINAL ULCER
     Dosage: STRENGTH: 40 MG, DOSE: 40 MG
     Route: 048
     Dates: start: 20191216
  5. GABARATIO [Concomitant]
     Active Substance: GABAPENTIN
     Indication: NEURALGIA
     Dosage: STRENGTH: 300 MG, DOSE: 300 MG
     Route: 048
     Dates: start: 20191207
  6. ELTROXIN [Concomitant]
     Active Substance: LEVOTHYROXINE
     Indication: HYPOTHYROIDISM
     Dosage: STRENGTH: 50 UG AND 100 UG, DOSAGE: 1ST DAY 100 UG 2ND DAY 150 UG
     Route: 048
     Dates: start: 20160509
  7. SAPIMOL [Suspect]
     Active Substance: ALBUTEROL SULFATE\IPRATROPIUM BROMIDE
     Indication: CHRONIC OBSTRUCTIVE PULMONARY DISEASE
     Dosage: STRENGTH: 2.5 + 0.5 MG PER CONTAINER, DOSAGE: 2.5 ML 3 TIMES DAILY
     Route: 055
     Dates: start: 20191213, end: 20200113
  8. BENDROZA [Concomitant]
     Active Substance: BENDROFLUMETHIAZIDE\POTASSIUM CHLORIDE
     Indication: HYPERTENSION
     Dosage: STRENGTH: 2.5 + 573 MG
     Route: 048
     Dates: start: 20191203
  9. PREDNISOLONE. [Suspect]
     Active Substance: PREDNISOLONE
     Indication: TEMPORAL ARTERITIS
     Dosage: STRENGTH: 25MG, DOSE: 75 MG  (DOSE REDUCED TO 0.7 MG / KG / DAY)
     Route: 048
     Dates: start: 20191223
  10. RAMIPRIL ^HEXAL^ [Concomitant]
     Indication: HYPERTENSION
     Dosage: STRENGTH: 5 MG, DOSE: 5 MG
     Route: 048
     Dates: start: 20191210

REACTIONS (1)
  - Hallucination [Recovering/Resolving]

NARRATIVE: CASE EVENT DATE: 20200104
